FAERS Safety Report 13182648 (Version 4)
Quarter: 2017Q3

REPORT INFORMATION
  Report Type: Report from Study
  Country: EC (occurrence: EC)
  Receive Date: 20170202
  Receipt Date: 20170915
  Transmission Date: 20171127
  Serious: Yes (Other)
  Sender: FDA-Public Use
  Company Number: EC-ROCHE-1809588

PATIENT
  Age: 78 Year
  Sex: Female

DRUGS (1)
  1. AVASTIN [Suspect]
     Active Substance: BEVACIZUMAB
     Indication: UTERINE CANCER
     Route: 042
     Dates: start: 20160722

REACTIONS (15)
  - Haemorrhage [Unknown]
  - Blindness [Not Recovered/Not Resolved]
  - Abdominal pain upper [Recovering/Resolving]
  - Pharyngeal ulceration [Recovering/Resolving]
  - Vision blurred [Not Recovered/Not Resolved]
  - Decreased appetite [Recovering/Resolving]
  - Feeling abnormal [Not Recovered/Not Resolved]
  - Performance status decreased [Unknown]
  - Vomiting [Unknown]
  - Diarrhoea [Recovering/Resolving]
  - Pyrexia [Unknown]
  - Nausea [Unknown]
  - Malaise [Unknown]
  - Urinary tract infection [Recovered/Resolved]
  - Dizziness [Not Recovered/Not Resolved]

NARRATIVE: CASE EVENT DATE: 20160722
